FAERS Safety Report 8520024-2 (Version None)
Quarter: 2012Q3

REPORT INFORMATION
  Report Type: 
  Country: None (occurrence: None)
  Receive Date: 20120719
  Receipt Date: 20120717
  Transmission Date: 20120928
  Serious: No
  Sender: FDA-Public Use
  Company Number: US-PFIZER INC-2012172847

PATIENT
  Age: 48 Year
  Sex: Male
  Weight: 81.633 kg

DRUGS (1)
  1. NICOTROL [Suspect]
     Indication: SMOKING CESSATION THERAPY
     Dosage: 10 MG/ML, 6X/DAY
     Route: 045

REACTIONS (5)
  - CONTUSION [None]
  - HEADACHE [None]
  - JOINT INJURY [None]
  - LIMB INJURY [None]
  - FALL [None]
